FAERS Safety Report 25192088 (Version 1)
Quarter: 2025Q2

REPORT INFORMATION
  Report Type: Spontaneous
  Country: US (occurrence: None)
  Receive Date: 20250410
  Receipt Date: 20250410
  Transmission Date: 20250716
  Serious: Yes (Disabling)
  Sender: FDA-CTU
  Company Number: None

PATIENT
  Age: 34 Year
  Sex: Female
  Weight: 58.51 kg

DRUGS (5)
  1. MIRENA [Suspect]
     Active Substance: LEVONORGESTREL
     Indication: Contraception
  2. IMITREX [Concomitant]
     Active Substance: SUMATRIPTAN SUCCINATE
  3. ZOFRAN [Concomitant]
     Active Substance: ONDANSETRON HYDROCHLORIDE
  4. FIORICET [Concomitant]
     Active Substance: ACETAMINOPHEN\BUTALBITAL\CAFFEINE
  5. VITAMINS [Concomitant]
     Active Substance: VITAMINS

REACTIONS (6)
  - Asherman^s syndrome [None]
  - Infertility female [None]
  - Complication associated with device [None]
  - Injury associated with device [None]
  - Uterine inflammation [None]
  - Uterine scar [None]

NARRATIVE: CASE EVENT DATE: 20250410
